FAERS Safety Report 13218905 (Version 1)
Quarter: 2017Q1

REPORT INFORMATION
  Report Type: Other
  Country: US (occurrence: US)
  Receive Date: 20170210
  Receipt Date: 20170210
  Transmission Date: 20170428
  Serious: No
  Sender: FDA-Public Use
  Company Number: US-ACORDA-ACO_126637_2016

PATIENT
  Age: 42 Year
  Sex: Male

DRUGS (2)
  1. FLOMAX [Suspect]
     Active Substance: TAMSULOSIN HYDROCHLORIDE
     Indication: PRODUCT USED FOR UNKNOWN INDICATION
     Dosage: UNK
     Route: 065
  2. AMPYRA [Suspect]
     Active Substance: DALFAMPRIDINE
     Indication: PRODUCT USED FOR UNKNOWN INDICATION
     Dosage: UNK
     Route: 065

REACTIONS (24)
  - Depression [Unknown]
  - Muscle spasticity [Unknown]
  - Fall [Unknown]
  - Paraesthesia [Unknown]
  - Multiple sclerosis relapse [Unknown]
  - Pollakiuria [Unknown]
  - Drug tolerance decreased [Unknown]
  - Temperature intolerance [Unknown]
  - Sexual dysfunction [Unknown]
  - Cognitive disorder [Unknown]
  - Quality of life decreased [Unknown]
  - Neuralgia [Unknown]
  - Asthenia [Unknown]
  - Dysuria [Unknown]
  - Anxiety [Unknown]
  - Vitamin D deficiency [Unknown]
  - Mobility decreased [Unknown]
  - Fatigue [Unknown]
  - Wheelchair user [Unknown]
  - Malaise [Unknown]
  - Bladder dysfunction [Unknown]
  - Functional gastrointestinal disorder [Unknown]
  - Diplopia [Unknown]
  - Condition aggravated [Unknown]

NARRATIVE: CASE EVENT DATE: 201607
